FAERS Safety Report 4659039-3 (Version None)
Quarter: 2005Q2

REPORT INFORMATION
  Report Type: 
  Country: None (occurrence: None)
  Receive Date: 20050509
  Receipt Date: 20050422
  Transmission Date: 20051028
  Serious: No
  Sender: FDA-Public Use
  Company Number: B0378183A

PATIENT
  Age: 75 Year
  Sex: Male

DRUGS (3)
  1. HYCAMTIN [Suspect]
     Indication: SMALL CELL LUNG CANCER STAGE UNSPECIFIED
     Dosage: INTRAVENOUS
     Route: 042
     Dates: start: 20040506, end: 20040621
  2. DEXAMETHASONE [Concomitant]
  3. GRANISETRON  HCL [Concomitant]

REACTIONS (6)
  - BLOOD LACTATE DEHYDROGENASE INCREASED [None]
  - HAEMOGLOBIN DECREASED [None]
  - NEUTROPHIL COUNT DECREASED [None]
  - PLATELET COUNT DECREASED [None]
  - PROTEIN TOTAL DECREASED [None]
  - WHITE BLOOD CELL COUNT DECREASED [None]
